FAERS Safety Report 17391504 (Version 2)
Quarter: 2020Q1

REPORT INFORMATION
  Report Type: Report from Study
  Country: None (occurrence: BE)
  Receive Date: 20200207
  Receipt Date: 20200211
  Transmission Date: 20200409
  Serious: Yes (Other)
  Sender: FDA-Public Use
  Company Number: BE-ABBVIE-20K-013-3235924-00

PATIENT
  Sex: Male

DRUGS (6)
  1. DUODOPA [Suspect]
     Active Substance: CARBIDOPA\LEVODOPA
     Dosage: MD=5ML, CD=3ML/HR DURING 16HRS, ED=0.9ML
     Route: 050
     Dates: start: 20200107, end: 2020
  2. DUODOPA [Suspect]
     Active Substance: CARBIDOPA\LEVODOPA
     Indication: PARKINSON^S DISEASE
     Dosage: MD=4ML, CD=2.5ML/HR DURING 16HRS, ED=1ML
     Route: 050
     Dates: start: 20200106, end: 20200107
  3. DUODOPA [Suspect]
     Active Substance: CARBIDOPA\LEVODOPA
     Dosage: MD=4ML, CD=3.8ML/HR DURING 16HRS, ED=1ML
     Route: 050
     Dates: start: 20200204
  4. PROLOPA 250 [Concomitant]
     Dosage: FORM STRENGTH: 200MG/50MG; UNIT DOSE: 0.5 TABLET (EVERY 1.5 HOURS FROM 7.30 AM TO 9 PM);
  5. GLUCOPHAGE [Concomitant]
     Active Substance: METFORMIN HYDROCHLORIDE
     Indication: PRODUCT USED FOR UNKNOWN INDICATION
  6. PROLOPA 250 [Concomitant]
     Indication: PARKINSON^S DISEASE
     Dosage: FORM STRENGTH: 200MG/50MG; UNIT DOSE: 0.5 TABLET (EVERY 1.5 HOURS FROM 8 PM)
     Route: 048

REACTIONS (5)
  - Chest pain [Unknown]
  - Troponin increased [Unknown]
  - Bronchitis [Recovered/Resolved]
  - Pneumonia [Recovered/Resolved]
  - C-reactive protein increased [Unknown]

NARRATIVE: CASE EVENT DATE: 2020
